FAERS Safety Report 11292601 (Version 1)
Quarter: 2015Q2

REPORT INFORMATION
  Report Type: Spontaneous
  Country: US (occurrence: None)
  Receive Date: 20150623
  Receipt Date: 20150623
  Transmission Date: 20150821
  Serious: Yes (Other)
  Sender: FDA-Public Use
  Company Number: RB-76828-2015

PATIENT
  Sex: Female

DRUGS (1)
  1. MUCINEX [Suspect]
     Active Substance: GUAIFENESIN
     Indication: COUGH
     Dates: start: 20150419

REACTIONS (16)
  - Back disorder [None]
  - Movement disorder [None]
  - Breast swelling [None]
  - Apparent death [None]
  - Psychomotor hyperactivity [None]
  - Hypertension [None]
  - Tremor [None]
  - Swelling [None]
  - Panic attack [None]
  - Palpitations [None]
  - Feeling cold [None]
  - Aphasia [None]
  - Jaw disorder [None]
  - Eye disorder [None]
  - Abasia [None]
  - Burning sensation [None]

NARRATIVE: CASE EVENT DATE: 201504
